FAERS Safety Report 9125100 (Version 1)
Quarter: 2013Q1

REPORT INFORMATION
  Report Type: Spontaneous
  Country: US (occurrence: US)
  Receive Date: 20130121
  Receipt Date: 20130121
  Transmission Date: 20140127
  Serious: No
  Sender: FDA-Public Use
  Company Number: US-B.I. PHARMACEUTICALS,INC./RIDGEFIELD-2013-BI-00493BP

PATIENT
  Sex: Male

DRUGS (4)
  1. SPIRIVA [Suspect]
     Route: 055
  2. SPIRIVA [Suspect]
     Route: 048
  3. ACIPHEX [Concomitant]
  4. KLONOPIN [Concomitant]

REACTIONS (1)
  - Incorrect route of drug administration [Not Recovered/Not Resolved]
